FAERS Safety Report 6026378-3 (Version None)
Quarter: 2009Q1

REPORT INFORMATION
  Report Type: 
  Country: None (occurrence: None)
  Receive Date: 20090102
  Receipt Date: 20081225
  Transmission Date: 20090719
  Serious: Yes (Other)
  Sender: FDA-Public Use
  Company Number: PHHY2008JP32017

PATIENT
  Sex: Male
  Weight: 66 kg

DRUGS (7)
  1. ZOMETA [Suspect]
     Indication: BACK PAIN
     Dosage: 4 MG, QMO
     Route: 042
     Dates: start: 20080101, end: 20080917
  2. CASODEX [Concomitant]
     Indication: PROSTATE CANCER
     Dosage: 80 MG/DAY
     Route: 048
     Dates: start: 20070401, end: 20070401
  3. CASODEX [Concomitant]
     Dosage: UNK
  4. ESTRACYT [Concomitant]
     Indication: PROSTATE CANCER
     Dosage: 626.8 MG/DAY
     Route: 048
     Dates: start: 20080401, end: 20080501
  5. ODYNE [Concomitant]
     Indication: PROSTATE CANCER
     Dosage: UNK
     Route: 048
     Dates: start: 20080701
  6. LEUPROLIDE ACETATE [Concomitant]
     Dosage: UNK
     Dates: start: 20070418
  7. ZOLADEX [Concomitant]
     Indication: PROSTATE CANCER

REACTIONS (3)
  - ABSCESS [None]
  - OSTEOMYELITIS [None]
  - STOMATITIS [None]
